FAERS Safety Report 10443241 (Version 1)
Quarter: 2014Q3

REPORT INFORMATION
  Report Type: Spontaneous
  Country: JP (occurrence: JP)
  Receive Date: 20140910
  Receipt Date: 20140910
  Transmission Date: 20150326
  Serious: Yes (Other)
  Sender: FDA-Public Use
  Company Number: JP-ACCORD-025796

PATIENT
  Age: 77 Year
  Sex: Female

DRUGS (2)
  1. NEDAPLATIN [Suspect]
     Active Substance: NEDAPLATIN
     Indication: URETERIC CANCER
     Dosage: DAY 1. ?2 CYCLES
  2. GEMCITABINE/GEMCITABINE HYDROCHLORIDE [Suspect]
     Active Substance: GEMCITABINE\GEMCITABINE HYDROCHLORIDE
     Indication: URETERIC CANCER
     Dosage: DAY 1 AND 8. 2 CYCLES

REACTIONS (1)
  - Pancytopenia [Unknown]
